FAERS Safety Report 22256578 (Version 2)
Quarter: 2025Q1

REPORT INFORMATION
  Report Type: Spontaneous
  Country: US (occurrence: US)
  Receive Date: 20230426
  Receipt Date: 20250328
  Transmission Date: 20250408
  Serious: Yes (Disabling)
  Sender: PFIZER
  Company Number: US-PFIZER INC-PV202300074703

PATIENT
  Age: 70 Year
  Sex: Female

DRUGS (11)
  1. XELJANZ XR [Suspect]
     Active Substance: TOFACITINIB CITRATE
  2. PREDNISONE [Concomitant]
     Active Substance: PREDNISONE
  3. DULOXETINE [Concomitant]
     Active Substance: DULOXETINE
  4. CRESTOR [Concomitant]
     Active Substance: ROSUVASTATIN CALCIUM
  5. TENORMIN [Concomitant]
     Active Substance: ATENOLOL
  6. CO Q 10 [UBIDECARENONE] [Concomitant]
  7. HYDRODIURIL [Concomitant]
     Active Substance: HYDROCHLOROTHIAZIDE
  8. RELAFEN [Concomitant]
     Active Substance: NABUMETONE
  9. FLONASE [Concomitant]
     Active Substance: FLUTICASONE PROPIONATE
  10. VITAMIN D3 [Concomitant]
     Active Substance: CHOLECALCIFEROL
  11. ASPIRIN [Concomitant]
     Active Substance: ASPIRIN

REACTIONS (1)
  - Injury [Not Recovered/Not Resolved]
